FAERS Safety Report 6505655-3 (Version None)
Quarter: 2009Q4

REPORT INFORMATION
  Report Type: 
  Country: None (occurrence: None)
  Receive Date: 20091218
  Receipt Date: 20091214
  Transmission Date: 20100525
  Serious: Yes (Death)
  Sender: FDA-Public Use
  Company Number: ES-SANOFI-AVENTIS-2009SA008624

PATIENT
  Age: 70 Year
  Sex: Male

DRUGS (2)
  1. LANTUS OPTISET [Suspect]
     Indication: TYPE 2 DIABETES MELLITUS
     Route: 058
     Dates: start: 20051101, end: 20090201
  2. OPTISET [Suspect]
     Indication: TYPE 2 DIABETES MELLITUS
     Dates: start: 20051101, end: 20090201

REACTIONS (1)
  - BREAST CANCER MALE [None]
